FAERS Safety Report 8547222-6 (Version None)
Quarter: 2012Q3

REPORT INFORMATION
  Report Type: 
  Country: None (occurrence: None)
  Receive Date: 20120727
  Receipt Date: 20120228
  Transmission Date: 20120928
  Serious: No
  Sender: FDA-Public Use
  Company Number: US-ASTRAZENECA-2012SE13930

PATIENT
  Age: 39 Year
  Sex: Female
  Weight: 63.5 kg

DRUGS (3)
  1. PAROXETINE [Concomitant]
  2. SEROQUEL [Suspect]
     Indication: SLEEP DISORDER
     Route: 048
  3. GABAPENTIN [Concomitant]

REACTIONS (2)
  - MUSCLE TWITCHING [None]
  - OFF LABEL USE [None]
